FAERS Safety Report 25928805 (Version 1)
Quarter: 2025Q4

REPORT INFORMATION
  Report Type: Spontaneous
  Country: EU (occurrence: EU)
  Receive Date: 20251016
  Receipt Date: 20251016
  Transmission Date: 20260118
  Serious: Yes (Other)
  Sender: AUROBINDO
  Company Number: EU-AFSSAPS-MP20212981

PATIENT
  Age: 55 Year
  Sex: Male
  Weight: 62 kg

DRUGS (8)
  1. LANSOPRAZOLE [Suspect]
     Active Substance: LANSOPRAZOLE
     Indication: Product used for unknown indication
     Dosage: 30 MILLIGRAM, ONCE A DAY
     Route: 048
     Dates: start: 20210419
  2. AMBISOME [Suspect]
     Active Substance: AMPHOTERICIN B
     Indication: Mucormycosis
     Dosage: 650 MILLIGRAM, ONCE A DAY (10 MG / KG THEN DECREASE TO 550 MG DUE TO POOR RENAL TOLERANCE)
     Route: 042
     Dates: start: 20210427, end: 20210514
  3. CEFAZOLIN SODIUM [Suspect]
     Active Substance: CEFAZOLIN SODIUM
     Indication: Sinusitis
     Dosage: 1 GRAM, 3 TIMES A DAY (ADAPTED ACCORDING TO RENAL FUNCTION (1G / 12H) UP TO 2G / 8H)
     Route: 030
     Dates: start: 20210513
  4. DAPTOMYCIN [Suspect]
     Active Substance: DAPTOMYCIN
     Indication: Sinusitis
     Dosage: 500 MILLIGRAM, ONCE A DAY
     Route: 042
     Dates: start: 20210413, end: 20210416
  5. AMITRIPTYLINE HYDROCHLORIDE [Suspect]
     Active Substance: AMITRIPTYLINE HYDROCHLORIDE
     Indication: Product used for unknown indication
     Dosage: UNK (FROM 15 TO 30 DROPS PER DAY)
     Route: 048
     Dates: start: 20210429, end: 20210506
  6. LOVENOX [Suspect]
     Active Substance: ENOXAPARIN SODIUM
     Indication: Thrombosis prophylaxis
     Dosage: 4000 INTERNATIONAL UNIT, ONCE A DAY
     Route: 058
     Dates: start: 20210428
  7. PIPERACILLIN AND TAZOBACTAM [Suspect]
     Active Substance: PIPERACILLIN SODIUM\TAZOBACTAM SODIUM
     Indication: Sinusitis
     Dosage: 4 GRAM, FOUR TIMES/DAY
     Route: 042
     Dates: start: 20210427, end: 20210504
  8. POSACONAZOLE [Suspect]
     Active Substance: POSACONAZOLE
     Indication: Mucormycosis
     Dosage: 100 MILLIGRAM, ONCE A DAY (LOADING DOSE 100MG * 2 THEN 100MG / D)
     Route: 048
     Dates: start: 20210515, end: 20210519

REACTIONS (1)
  - Cholestasis [Recovering/Resolving]

NARRATIVE: CASE EVENT DATE: 20210519
